FAERS Safety Report 7883478-0 (Version None)
Quarter: 2011Q4

REPORT INFORMATION
  Report Type: 
  Country: None (occurrence: None)
  Receive Date: 20111102
  Receipt Date: 20110114
  Transmission Date: 20120403
  Serious: No
  Sender: FDA-Public Use
  Company Number: US-GLAXOSMITHKLINE-A0728121A

PATIENT
  Age: 77 Year
  Sex: Male

DRUGS (5)
  1. RYTHMOL [Suspect]
     Indication: PRODUCT USED FOR UNKNOWN INDICATION
     Route: 065
  2. RYTHMOL SR [Suspect]
     Indication: ATRIAL FIBRILLATION
     Dosage: 225MG TWICE PER DAY
     Route: 048
     Dates: start: 20080509
  3. LIPITOR [Concomitant]
  4. ANTIHYPERTENSIVE [Concomitant]
  5. ASPIRIN [Concomitant]

REACTIONS (2)
  - CONSTIPATION [None]
  - DYSGEUSIA [None]
